FAERS Safety Report 19123264 (Version 1)
Quarter: 2021Q2

REPORT INFORMATION
  Report Type: Spontaneous
  Country: GB (occurrence: GB)
  Receive Date: 20210412
  Receipt Date: 20210412
  Transmission Date: 20210717
  Serious: Yes (Life-Threatening)
  Sender: FDA-Public Use
  Company Number: GB-MYLANLABS-2021M1021478

PATIENT
  Age: 87 Year
  Sex: Female
  Weight: 60 kg

DRUGS (1)
  1. PREGABALIN MYLAN [Suspect]
     Active Substance: PREGABALIN
     Indication: ANXIETY
     Dosage: 50 MILLIGRAM, BID
     Route: 048
     Dates: start: 20210304

REACTIONS (4)
  - Genital blister [Not Recovered/Not Resolved]
  - Cardiac failure [Not Recovered/Not Resolved]
  - Rash [Not Recovered/Not Resolved]
  - Genital rash [Not Recovered/Not Resolved]

NARRATIVE: CASE EVENT DATE: 20210315
